FAERS Safety Report 10521921 (Version 1)
Quarter: 2014Q4

REPORT INFORMATION
  Report Type: Spontaneous
  Country: US (occurrence: US)
  Receive Date: 20141016
  Receipt Date: 20141016
  Transmission Date: 20150528
  Serious: No
  Sender: FDA-Public Use
  Company Number: US-009507513-1410USA005310

PATIENT
  Sex: Male

DRUGS (3)
  1. INTELENCE [Concomitant]
     Active Substance: ETRAVIRINE
  2. TRUVADA [Concomitant]
     Active Substance: EMTRICITABINE\TENOFOVIR DISOPROXIL FUMARATE
  3. ISENTRESS [Suspect]
     Active Substance: RALTEGRAVIR POTASSIUM
     Indication: HIV INFECTION
     Dosage: AS PRESCRIBED
     Route: 048

REACTIONS (1)
  - Blood creatine phosphokinase increased [Unknown]
